FAERS Safety Report 23921833 (Version 47)
Quarter: 2025Q3

REPORT INFORMATION
  Report Type: Report from Study
  Country: CO (occurrence: CO)
  Receive Date: 20240530
  Receipt Date: 20250910
  Transmission Date: 20251021
  Serious: Yes (Death, Life-Threatening, Hospitalization, Other)
  Sender: TAKEDA
  Company Number: CO-TAKEDA-2024TUS013096

PATIENT
  Age: 1 Year
  Sex: Male
  Weight: 10 kg

DRUGS (9)
  1. TEDUGLUTIDE [Suspect]
     Active Substance: TEDUGLUTIDE
     Indication: Short-bowel syndrome
     Dosage: 0.5 MILLIGRAM, QD
  2. TEDUGLUTIDE [Suspect]
     Active Substance: TEDUGLUTIDE
     Dosage: 0.5 MILLIGRAM, QD
     Dates: start: 20240427, end: 20250902
  3. TEDUGLUTIDE [Suspect]
     Active Substance: TEDUGLUTIDE
  4. TEDUGLUTIDE [Suspect]
     Active Substance: TEDUGLUTIDE
  5. HYDROCHLOROTHIAZIDE [Concomitant]
     Active Substance: HYDROCHLOROTHIAZIDE
     Dosage: UNK UNK, Q12H
  6. METRONIDAZOLE [Concomitant]
     Active Substance: METRONIDAZOLE
     Dosage: UNK UNK, Q12H
  7. LOPERAMIDE [Concomitant]
     Active Substance: LOPERAMIDE
     Dosage: UNK UNK, Q8HR
  8. ENOXAPARIN [Concomitant]
     Active Substance: ENOXAPARIN
     Dosage: 10 MILLIGRAM, Q12H
  9. ENOXAPARIN [Concomitant]
     Active Substance: ENOXAPARIN
     Dosage: 10 MILLIGRAM, Q12H

REACTIONS (37)
  - Dyspnoea [Fatal]
  - Feeding disorder [Unknown]
  - Terminal state [Unknown]
  - Klebsiella infection [Unknown]
  - Dehydration [Unknown]
  - Pyrexia [Recovering/Resolving]
  - Discouragement [Unknown]
  - Device occlusion [Unknown]
  - Haemoglobin abnormal [Unknown]
  - Device dislocation [Unknown]
  - General physical health deterioration [Unknown]
  - Vomiting [Unknown]
  - Vascular device infection [Unknown]
  - Coagulopathy [Unknown]
  - Device related infection [Unknown]
  - Weight decreased [Unknown]
  - Gait disturbance [Unknown]
  - Developmental regression [Unknown]
  - Head injury [Unknown]
  - Fall [Unknown]
  - Diarrhoea [Unknown]
  - Treatment noncompliance [Unknown]
  - Viral infection [Unknown]
  - Platelet count decreased [Unknown]
  - Weight increased [Unknown]
  - Body height increased [Unknown]
  - Administration site phlebitis [Unknown]
  - Inappropriate schedule of product administration [Unknown]
  - Product dose omission issue [Unknown]
  - Discoloured vomit [Unknown]
  - Nasal discharge discolouration [Unknown]
  - Influenza [Not Recovered/Not Resolved]
  - Cough [Not Recovered/Not Resolved]
  - Decreased appetite [Unknown]
  - Incorrect dose administered [Unknown]
  - Product prescribing error [Unknown]
  - Product physical issue [Unknown]

NARRATIVE: CASE EVENT DATE: 20240427
